FAERS Safety Report 6244357-8 (Version None)
Quarter: 2009Q2

REPORT INFORMATION
  Report Type: 
  Country: None (occurrence: None)
  Receive Date: 20090625
  Receipt Date: 20090615
  Transmission Date: 20091009
  Serious: Yes (Other)
  Sender: FDA-Public Use
  Company Number: PHHY2009JP24456

PATIENT
  Age: 7 Year
  Sex: Male
  Weight: 25.2 kg

DRUGS (2)
  1. TEGRETOL [Suspect]
     Dosage: 0.4 G DAILY
     Route: 048
     Dates: start: 20090401
  2. CEFDINIR [Concomitant]
     Indication: PAROTID GLAND ENLARGEMENT
     Dosage: UNK
     Route: 048
     Dates: start: 20090608, end: 20090614

REACTIONS (2)
  - LENTIGO [None]
  - PAROTID GLAND ENLARGEMENT [None]
